FAERS Safety Report 6356633-9 (Version None)
Quarter: 2009Q3

REPORT INFORMATION
  Report Type: 
  Country: None (occurrence: None)
  Receive Date: 20090914
  Receipt Date: 20090914
  Transmission Date: 20100115
  Serious: Yes (Hospitalization)
  Sender: FDA-Public Use
  Company Number: None

PATIENT
  Age: 73 Year
  Sex: Male
  Weight: 56.2 kg

DRUGS (1)
  1. POTASSIUM CHLORIDE [Suspect]
     Indication: BLOOD POTASSIUM
     Dosage: 10 MEQ EVERY DAY PO
     Route: 048
     Dates: start: 20090826, end: 20090910

REACTIONS (1)
  - HYPERKALAEMIA [None]
